FAERS Safety Report 13519185 (Version 7)
Quarter: 2018Q1

REPORT INFORMATION
  Report Type: Report from Study
  Country: DE (occurrence: DE)
  Receive Date: 20170505
  Receipt Date: 20180112
  Transmission Date: 20180508
  Serious: Yes (Hospitalization)
  Sender: FDA-Public Use
  Company Number: DE-PFIZER INC-2017180662

PATIENT
  Age: 79 Year
  Sex: Female
  Weight: 81 kg

DRUGS (16)
  1. RESTEX [Concomitant]
     Active Substance: BENSERAZIDE
     Indication: RESTLESS LEGS SYNDROME
     Dosage: UNK
     Route: 048
     Dates: start: 2013
  2. PALBOCICLIB [Suspect]
     Active Substance: PALBOCICLIB
     Indication: BREAST CANCER
     Dosage: 125 MG, DAILY
     Route: 048
     Dates: start: 20170112, end: 20170329
  3. NOVAMINSULFON-RATIOPHARM [Concomitant]
     Active Substance: METAMIZOLE
     Indication: BONE PAIN
     Dosage: UNK
     Route: 048
  4. PANTOPRAZOL BETA [Concomitant]
     Indication: PROPHYLAXIS
     Dosage: 20MG-40MG
     Route: 048
     Dates: end: 20170426
  5. TILIDIN RATIOPHARM [Concomitant]
     Indication: OSTEOARTHRITIS
     Dosage: UNK
     Route: 048
     Dates: start: 2013, end: 20170424
  6. ZOMETA [Concomitant]
     Active Substance: ZOLEDRONIC ACID
     Indication: BONE PAIN
     Dosage: UNK
     Route: 042
     Dates: start: 20170112
  7. CIPROBAY [Concomitant]
     Active Substance: CIPROFLOXACIN
     Indication: URINARY TRACT INFECTION
     Dosage: UNK
     Route: 048
     Dates: start: 20170426, end: 201705
  8. VOMEX A [Concomitant]
     Active Substance: DIMENHYDRINATE
     Indication: VOMITING
     Dosage: UNK
     Route: 048
     Dates: start: 20170201, end: 20170202
  9. CALCIUM BRAUSE [Concomitant]
     Indication: HYPOCALCAEMIA
     Dosage: UNK
     Route: 048
     Dates: start: 201704, end: 201704
  10. FRAXIPARIN [Concomitant]
     Active Substance: NADROPARIN CALCIUM
     Indication: PROPHYLAXIS
     Dosage: UNK
     Route: 058
     Dates: start: 20170425, end: 201705
  11. PANTOPRAZOL [Concomitant]
     Active Substance: PANTOPRAZOLE SODIUM
     Indication: DUODENAL ULCER
     Dosage: UNK
     Route: 048
     Dates: start: 20170427
  12. MACROGOL [Concomitant]
     Active Substance: POLYETHYLENE GLYCOLS
     Indication: PROPHYLAXIS
     Dosage: UNK
     Route: 048
  13. METOHEXAL [Concomitant]
     Active Substance: METOPROLOL SUCCINATE
     Indication: HYPERTENSION
     Dosage: UNK
     Route: 048
  14. LETROZOLE. [Suspect]
     Active Substance: LETROZOLE
     Indication: BREAST CANCER
     Dosage: 2.5 MG, DAILY
     Route: 048
     Dates: start: 20170112, end: 20170405
  15. HCT RATIOPHARM [Concomitant]
     Indication: HYPERTENSION
     Dosage: UNK
     Route: 048
  16. RAMIPRIL BETA [Concomitant]
     Active Substance: RAMIPRIL
     Indication: HYPERTENSION
     Dosage: UNK
     Route: 048
     Dates: start: 1996

REACTIONS (2)
  - General physical health deterioration [Recovered/Resolved]
  - Pathological fracture [Unknown]

NARRATIVE: CASE EVENT DATE: 20170417
